FAERS Safety Report 9262545 (Version 1)
Quarter: 2013Q2

REPORT INFORMATION
  Report Type: Spontaneous
  Country: GB (occurrence: GB)
  Receive Date: 20130430
  Receipt Date: 20130430
  Transmission Date: 20140414
  Serious: Yes (Other)
  Sender: FDA-Public Use
  Company Number: GB-MICRO LABS LIMITED-BB2013-GB-00244

PATIENT
  Age: 87 Year
  Sex: Female

DRUGS (2)
  1. LOSARTAN [Suspect]
     Indication: BLOOD PRESSURE
     Route: 048
     Dates: start: 20120923, end: 20120926
  2. ANTIASTHMATICS [Concomitant]
     Indication: PRODUCT USED FOR UNKNOWN INDICATION
     Route: 065

REACTIONS (2)
  - Dysphagia [Not Recovered/Not Resolved]
  - Odynophagia [Not Recovered/Not Resolved]
